FAERS Safety Report 19361242 (Version 1)
Quarter: 2021Q2

REPORT INFORMATION
  Report Type: Spontaneous
  Country: US (occurrence: US)
  Receive Date: 20210601
  Receipt Date: 20210601
  Transmission Date: 20210717
  Serious: Yes (Other)
  Sender: FDA-Public Use
  Company Number: US-SA-2021SA180057

PATIENT
  Sex: Female

DRUGS (1)
  1. DUPIXENT [Suspect]
     Active Substance: DUPILUMAB
     Dosage: 200 MG (200 MG/1.14 ML PFS 2^S), QOW
     Route: 058
     Dates: start: 202009

REACTIONS (7)
  - Skin exfoliation [Unknown]
  - Skin fissures [Unknown]
  - Haemorrhage [Unknown]
  - Skin weeping [Unknown]
  - Dry skin [Unknown]
  - Sleep disorder [Unknown]
  - Pruritus [Unknown]
